FAERS Safety Report 8843691 (Version 3)
Quarter: 2013Q1

REPORT INFORMATION
  Report Type: Report from Study
  Country: CA (occurrence: CA)
  Receive Date: 20121016
  Receipt Date: 20130206
  Transmission Date: 20140127
  Serious: Yes (Death, Hospitalization, Other)
  Sender: FDA-Public Use
  Company Number: CA-ROCHE-1066218

PATIENT
  Sex: Female
  Weight: 70.9 kg

DRUGS (10)
  1. AVASTIN [Suspect]
     Indication: GLIOBLASTOMA
     Route: 042
     Dates: start: 20120413
  2. AVASTIN [Suspect]
     Route: 042
     Dates: start: 20120726, end: 20120907
  3. DILANTIN [Concomitant]
  4. TEMODAL [Concomitant]
  5. PANTOLOC [Concomitant]
  6. ZOFRAN [Concomitant]
  7. DEXAMETHASONE [Concomitant]
  8. DECADRON [Concomitant]
  9. MATULANE [Concomitant]
  10. LOVENOX [Concomitant]

REACTIONS (7)
  - Disease progression [Fatal]
  - Hydrocephalus [Recovering/Resolving]
  - Vomiting [Recovering/Resolving]
  - Dysarthria [Recovering/Resolving]
  - Feeding disorder [Recovering/Resolving]
  - Gait disturbance [Recovering/Resolving]
  - Thrombosis [Not Recovered/Not Resolved]
